FAERS Safety Report 8964207 (Version 4)
Quarter: 2013Q4

REPORT INFORMATION
  Report Type: Report from Study
  Country: US (occurrence: US)
  Receive Date: 20121213
  Receipt Date: 20131003
  Transmission Date: 20140711
  Serious: Yes (Hospitalization, Other)
  Sender: FDA-Public Use
  Company Number: PHEH2012US024493

PATIENT
  Age: 60 Year
  Sex: Female
  Weight: 55 kg

DRUGS (20)
  1. GILENYA [Suspect]
     Indication: MULTIPLE SCLEROSIS
     Dosage: 0.5 MG, QD
     Route: 048
     Dates: start: 20120126, end: 20121216
  2. GILENYA [Suspect]
     Dosage: 0.5 MG, QD
     Route: 048
     Dates: start: 20130823, end: 20130906
  3. LYRICA [Concomitant]
  4. ATIVAN [Concomitant]
  5. DURAGESIC [Concomitant]
  6. BACLOFEN [Concomitant]
  7. LORTAB [Concomitant]
  8. CYMBALTA [Concomitant]
  9. METOPROLOL [Concomitant]
  10. MELOXICAM [Concomitant]
  11. LIPITOR [Concomitant]
  12. ASPIRIN [Concomitant]
     Dosage: 81 MG, UNK
  13. CITRUCEL [Concomitant]
  14. COLACE [Concomitant]
  15. ATACAND [Concomitant]
     Dosage: UNK UKN, UNK
  16. LOPRESSOR [Concomitant]
     Dosage: UNK UKN, UNK
  17. MOBIC [Concomitant]
     Dosage: UNK UKN, UNK
  18. GELNIQUE [Concomitant]
     Dosage: UNK UKN, UNK
  19. CITRACAL [Concomitant]
     Dosage: UNK UKN, UNK
  20. SOYON [Concomitant]
     Dosage: UNK UKN, UNK

REACTIONS (15)
  - Hallucination [Unknown]
  - Coma [Unknown]
  - White blood cell count decreased [Not Recovered/Not Resolved]
  - Red blood cell count decreased [Unknown]
  - Fall [Unknown]
  - Lymphocyte count decreased [Unknown]
  - Herpes zoster [Recovering/Resolving]
  - Pain in extremity [Not Recovered/Not Resolved]
  - Neck pain [Not Recovered/Not Resolved]
  - Chest pain [Not Recovered/Not Resolved]
  - Rash vesicular [Not Recovered/Not Resolved]
  - Pruritus [Not Recovered/Not Resolved]
  - Neuralgia [Not Recovered/Not Resolved]
  - Pain [Unknown]
  - Arthralgia [Recovering/Resolving]
